FAERS Safety Report 8842250 (Version 2)
Quarter: 2012Q4

REPORT INFORMATION
  Report Type: 
  Country: PH (occurrence: PH)
  Receive Date: 20121016
  Receipt Date: 20121213
  Transmission Date: 20130627
  Serious: Yes (Hospitalization, Disabling)
  Sender: FDA-Public Use
  Company Number: PH-ABBOTT-12P-128-0994618-00

PATIENT
  Age: 9 Month
  Sex: Female

DRUGS (2)
  1. RACECADOTRIL [Suspect]
     Indication: DIARRHOEA
     Dosage: 15mg/dose
     Route: 048
     Dates: start: 20121004, end: 20121004
  2. ZINC [Concomitant]
     Indication: DIARRHOEA
     Route: 048
     Dates: start: 20121004

REACTIONS (2)
  - Rash [Recovered/Resolved]
  - Staphylococcal scalded skin syndrome [Recovered/Resolved]
